FAERS Safety Report 4325403-5 (Version None)
Quarter: 2004Q1

REPORT INFORMATION
  Report Type: 
  Country: None (occurrence: None)
  Receive Date: 20040324
  Receipt Date: 20040310
  Transmission Date: 20041129
  Serious: Yes (Hospitalization)
  Sender: FDA-Public Use
  Company Number: US-SHR-04-021175

PATIENT
  Age: 65 Year
  Sex: Female
  Weight: 102 kg

DRUGS (11)
  1. BETAPACE AF (SOTALOL HYDROCHLORIDE) TABLET, 80 MG [Suspect]
     Indication: ATRIAL FIBRILLATION
     Dosage: 80 MG, 2X/DAY,ORAL
     Route: 048
     Dates: start: 20040101, end: 20040201
  2. SOTALOL (SOTALOL) 80 MG [Suspect]
     Indication: ATRIAL FIBRILLATION
     Dosage: SEE IMAGE ORAL
     Route: 048
     Dates: start: 20040201, end: 20040201
  3. SOTALOL (SOTALOL) 80 MG [Suspect]
     Indication: ATRIAL FIBRILLATION
     Dosage: SEE IMAGE ORAL
     Route: 048
     Dates: start: 20040201
  4. HUMULIN 70/30 (INSULIN HUMAN ZINC SUSPENSION, INSULIN HUMAN INJECTION, [Concomitant]
  5. LANTUS (INSULIN GLARGINE) INJECTION [Concomitant]
  6. LASIX/SCH/(FUROSEMIDE SODIUM) [Concomitant]
  7. PROZAC [Concomitant]
  8. ZESTRIL/USA/(LISINOPRIL) [Concomitant]
  9. COUMADIN [Concomitant]
  10. LANOXIN [Concomitant]
  11. KLONOPIN [Concomitant]

REACTIONS (3)
  - CARDIAC FAILURE CONGESTIVE [None]
  - HYPOAESTHESIA [None]
  - PNEUMONIA [None]
